FAERS Safety Report 8328385-4 (Version None)
Quarter: 2012Q2

REPORT INFORMATION
  Report Type: 
  Country: None (occurrence: None)
  Receive Date: 20120502
  Receipt Date: 20120424
  Transmission Date: 20120825
  Serious: Yes (Hospitalization)
  Sender: FDA-Public Use
  Company Number: US-BAYER-2012-000034

PATIENT
  Age: 34 Year
  Sex: Female
  Weight: 63.492 kg

DRUGS (2)
  1. YAZ [Suspect]
     Dates: start: 20070601, end: 20091101
  2. YASMIN [Suspect]
     Dates: start: 20070601, end: 20091101

REACTIONS (2)
  - THROMBOPHLEBITIS SUPERFICIAL [None]
  - THROMBOSIS [None]
